FAERS Safety Report 9636188 (Version 2)
Quarter: 2014Q2

REPORT INFORMATION
  Report Type: Spontaneous
  Country: US (occurrence: US)
  Receive Date: 20131021
  Receipt Date: 20140409
  Transmission Date: 20141212
  Serious: Yes (Other)
  Sender: FDA-Public Use
  Company Number: US-B.I. PHARMACEUTICALS,INC./RIDGEFIELD-2013-BI-32820BP

PATIENT
  Age: 73 Year
  Sex: Male
  Weight: 81.65 kg

DRUGS (19)
  1. PRADAXA [Suspect]
     Indication: ATRIAL FLUTTER
     Dosage: 300 MG
     Route: 048
     Dates: start: 20120601, end: 20120626
  2. ASPIRIN [Concomitant]
     Dosage: 81 MG
     Route: 048
     Dates: start: 2008
  3. VITAMIN B12 [Concomitant]
     Dosage: 1000 MCG
     Route: 048
  4. FOLIC ACID [Concomitant]
     Dosage: 400 MCG
     Route: 048
     Dates: start: 2008
  5. PREVACID [Concomitant]
     Dosage: 15 MG
     Route: 048
  6. PRINIVIL [Concomitant]
     Dosage: 5 MG
     Route: 048
  7. MECLIZINE [Concomitant]
     Indication: DIZZINESS
     Route: 048
  8. TOPROL XL [Concomitant]
     Dosage: 50 MG
     Route: 048
  9. NITROSTAT [Concomitant]
     Indication: CHEST PAIN
     Route: 060
     Dates: start: 2008
  10. MIRALAX [Concomitant]
     Route: 048
  11. PRAVACHOL [Concomitant]
     Dosage: 80 MG
     Route: 048
  12. ALBUTEROL [Concomitant]
     Route: 065
     Dates: start: 2008
  13. CARVEDILOL [Concomitant]
     Route: 065
     Dates: start: 2008
  14. ACETAMINOPHEN [Concomitant]
     Route: 065
  15. LOSARTAN [Concomitant]
     Route: 065
     Dates: start: 2008
  16. ISOSORBIDE [Concomitant]
     Route: 065
     Dates: start: 2008
  17. ATORVASTATIN [Concomitant]
     Route: 065
     Dates: start: 2008
  18. OMEPRAZOLE [Concomitant]
     Route: 065
     Dates: start: 2008
  19. MULTAQ [Concomitant]
     Route: 065

REACTIONS (1)
  - Pulmonary haemorrhage [Recovered/Resolved]
